FAERS Safety Report 9801639 (Version 1)
Quarter: 2014Q1

REPORT INFORMATION
  Report Type: Report from Study
  Country: US (occurrence: US)
  Receive Date: 20140107
  Receipt Date: 20140107
  Transmission Date: 20141002
  Serious: Yes (Other)
  Sender: FDA-Public Use
  Company Number: US-JNJFOC-20131218022

PATIENT
  Age: 0 None
  Sex: Female

DRUGS (3)
  1. REMICADE [Suspect]
     Indication: CROHN^S DISEASE
     Route: 064
     Dates: start: 200705, end: 2011
  2. 6 MP [Suspect]
     Indication: CROHN^S DISEASE
     Dosage: 6 MP MADE BABY^S MOTHER NAUSEOUS, SO WENT FROM 75 MG TO 50 MG
     Route: 064
     Dates: start: 2013
  3. 6 MP [Suspect]
     Indication: CROHN^S DISEASE
     Route: 064
     Dates: start: 2007, end: 2008

REACTIONS (2)
  - Premature baby [Not Recovered/Not Resolved]
  - Foetal exposure during pregnancy [Recovered/Resolved]
